FAERS Safety Report 5999110-7 (Version None)
Quarter: 2008Q4

REPORT INFORMATION
  Report Type: 
  Country: None (occurrence: None)
  Receive Date: 20081215
  Receipt Date: 20081202
  Transmission Date: 20090506
  Serious: Yes (Other)
  Sender: FDA-Public Use
  Company Number: US-JNJFOC-20081005188

PATIENT
  Sex: Female

DRUGS (21)
  1. TOPAMAX [Suspect]
     Indication: HEADACHE
     Route: 048
  2. YASMIN [Suspect]
     Indication: CONTRACEPTION
  3. PROGRAF [Concomitant]
     Indication: DRUG USE FOR UNKNOWN INDICATION
  4. CELLCEPT [Concomitant]
     Indication: DRUG USE FOR UNKNOWN INDICATION
     Route: 048
  5. PREDNISONE TAB [Concomitant]
     Indication: DRUG USE FOR UNKNOWN INDICATION
     Route: 048
  6. NEXIUM [Concomitant]
     Indication: DRUG USE FOR UNKNOWN INDICATION
  7. LASIX [Concomitant]
     Indication: DRUG USE FOR UNKNOWN INDICATION
  8. ALDACTONE [Concomitant]
     Indication: DRUG USE FOR UNKNOWN INDICATION
  9. POTASSIUM CHLORIDE [Concomitant]
     Indication: DRUG USE FOR UNKNOWN INDICATION
  10. MAGNESIUM SULFATE [Concomitant]
     Indication: DRUG USE FOR UNKNOWN INDICATION
  11. SIMVASTATIN [Concomitant]
     Indication: DRUG USE FOR UNKNOWN INDICATION
  12. CARVEDILOL [Concomitant]
     Indication: DRUG USE FOR UNKNOWN INDICATION
  13. ASPIRIN [Concomitant]
     Indication: DRUG USE FOR UNKNOWN INDICATION
  14. CALCIUM [Concomitant]
     Indication: DRUG USE FOR UNKNOWN INDICATION
  15. FISH OIL [Concomitant]
     Indication: DRUG USE FOR UNKNOWN INDICATION
  16. RAPAMUNE [Concomitant]
     Indication: DRUG USE FOR UNKNOWN INDICATION
  17. VITAMINS [Concomitant]
     Indication: DRUG USE FOR UNKNOWN INDICATION
  18. LASIX [Concomitant]
  19. PRILOSEC [Concomitant]
     Indication: DRUG USE FOR UNKNOWN INDICATION
  20. OMEGA-3 FATTY ACIDS [Concomitant]
     Indication: DRUG USE FOR UNKNOWN INDICATION
  21. MCT OIL [Concomitant]
     Indication: DRUG USE FOR UNKNOWN INDICATION

REACTIONS (10)
  - ATAXIA [None]
  - BETA HAEMOLYTIC STREPTOCOCCAL INFECTION [None]
  - CHOLELITHIASIS [None]
  - DEEP VEIN THROMBOSIS [None]
  - DIARRHOEA [None]
  - HYPOCALCAEMIA [None]
  - NAUSEA [None]
  - RENAL FAILURE ACUTE [None]
  - TRANSPLANT REJECTION [None]
  - VENOUS THROMBOSIS [None]
